FAERS Safety Report 7804150-9 (Version None)
Quarter: 2011Q4

REPORT INFORMATION
  Report Type: 
  Country: None (occurrence: None)
  Receive Date: 20111010
  Receipt Date: 20110929
  Transmission Date: 20120403
  Serious: Yes (Other)
  Sender: FDA-Public Use
  Company Number: SE-JNJFOC-20111000184

PATIENT
  Sex: Male

DRUGS (1)
  1. INVEGA [Suspect]
     Indication: PARANOID PERSONALITY DISORDER
     Route: 048

REACTIONS (3)
  - AGGRESSION [None]
  - SLEEP DISORDER [None]
  - SOMNAMBULISM [None]
